FAERS Safety Report 7528912-0 (Version None)
Quarter: 2011Q2

REPORT INFORMATION
  Report Type: 
  Country: None (occurrence: None)
  Receive Date: 20110607
  Receipt Date: 20110525
  Transmission Date: 20111010
  Serious: Yes (Hospitalization)
  Sender: FDA-Public Use
  Company Number: PHFR2011IE02189

PATIENT
  Sex: Female

DRUGS (1)
  1. CLOZARIL [Suspect]
     Indication: PSYCHOTIC DISORDER
     Dosage: 525 MG
     Route: 048
     Dates: start: 20000120

REACTIONS (11)
  - BRONCHOSPASM [None]
  - MITRAL VALVE INCOMPETENCE [None]
  - AGITATION [None]
  - EMPHYSEMA [None]
  - SEPSIS [None]
  - RESPIRATORY FAILURE [None]
  - WHITE BLOOD CELL COUNT INCREASED [None]
  - PULMONARY HYPERTENSION [None]
  - MYOCARDIAL ISCHAEMIA [None]
  - CORONARY ARTERY DISEASE [None]
  - NEUTROPHIL COUNT INCREASED [None]
